FAERS Safety Report 8215311-1 (Version None)
Quarter: 2012Q1

REPORT INFORMATION
  Report Type: 
  Country: None (occurrence: None)
  Receive Date: 20120316
  Receipt Date: 20120306
  Transmission Date: 20120608
  Serious: Yes (Hospitalization)
  Sender: FDA-Public Use
  Company Number: US-ELI_LILLY_AND_COMPANY-US201202002988

PATIENT
  Sex: Female
  Weight: 42.177 kg

DRUGS (14)
  1. KLONOPIN [Concomitant]
     Dosage: UNK, BID
  2. PRAVASTATIN [Concomitant]
     Dosage: 40 MG, QD
  3. LEVOTHYROXINE SODIUM [Concomitant]
     Indication: THYROID DISORDER
     Dosage: 25 MG, QD
  4. ANALGESICS [Concomitant]
     Dosage: UNK, PRN
  5. CALCIUM 600 + D [Concomitant]
     Dosage: UNK UNK, BID
  6. MULTI-VITAMIN [Concomitant]
     Dosage: UNK, QD
  7. TOPROL-XL [Concomitant]
     Dosage: 0.5 DF, QD
  8. OMEPRAZOLE [Concomitant]
     Dosage: UNK, QD
  9. FORTEO [Suspect]
     Indication: OSTEOPOROSIS
     Dosage: 20 UG, QD
     Route: 058
     Dates: start: 20111215
  10. ASPIRIN [Concomitant]
     Dosage: 81 MG, QD
  11. VITAMIN D [Concomitant]
     Dosage: UNK, QD
  12. BENTYL [Concomitant]
     Dosage: UNK, BID
  13. REMERON [Concomitant]
     Dosage: 30 MG, QD
  14. FISH OIL [Concomitant]

REACTIONS (6)
  - HYPOMAGNESAEMIA [None]
  - SINUSITIS [None]
  - VASCULAR ACCESS COMPLICATION [None]
  - HYPOTENSION [None]
  - DEHYDRATION [None]
  - HYPOPHAGIA [None]
